FAERS Safety Report 6905427-1 (Version None)
Quarter: 2010Q3

REPORT INFORMATION
  Report Type: 
  Country: None (occurrence: None)
  Receive Date: 20100804
  Receipt Date: 20100722
  Transmission Date: 20110219
  Serious: Yes (Other)
  Sender: FDA-Public Use
  Company Number: DE-CELGENEUS-062-20785-10072151

PATIENT
  Sex: Female

DRUGS (8)
  1. THALIDOMIDE [Suspect]
     Indication: MENINGITIS TUBERCULOUS
     Route: 048
  2. PYRAZINAMIDE [Concomitant]
     Route: 065
  3. RIFAMPICIN [Concomitant]
     Route: 065
  4. ISONIAZID [Concomitant]
     Route: 065
  5. DEXAMETHASONE [Concomitant]
     Indication: PRODUCT USED FOR UNKNOWN INDICATION
     Route: 065
  6. PENTOXIFYLLINE [Concomitant]
     Indication: THROMBOSIS PROPHYLAXIS
     Route: 065
  7. CLOPIDOGREL [Concomitant]
     Indication: THROMBOSIS PROPHYLAXIS
     Route: 065
  8. ANTITHROMBOCYTE AGGREGATION MEDICATION [Concomitant]
     Indication: THROMBOSIS PROPHYLAXIS
     Route: 065

REACTIONS (4)
  - ARTERIAL OCCLUSIVE DISEASE [None]
  - ARTERITIS [None]
  - CAROTID ARTERY STENOSIS [None]
  - HEMIPARESIS [None]
